FAERS Safety Report 5759433-3 (Version None)
Quarter: 2008Q2

REPORT INFORMATION
  Report Type: 
  Country: None (occurrence: None)
  Receive Date: 20080604
  Receipt Date: 20080604
  Transmission Date: 20081010
  Serious: Yes (Congenital Anomaly, Other)
  Sender: FDA-Public Use
  Company Number: None

PATIENT
  Age: 69 Year
  Sex: Male
  Weight: 113.3993 kg

DRUGS (2)
  1. ACTOS [Suspect]
     Dosage: ONE-PER DAY
     Dates: start: 20030106, end: 20040313
  2. GLYBURIDE [Suspect]
     Dosage: 5MG-TWICE DALY

REACTIONS (7)
  - ANAEMIA [None]
  - ARTHRITIS [None]
  - CARPAL TUNNEL SYNDROME [None]
  - CHOLELITHIASIS [None]
  - MACULAR DEGENERATION [None]
  - OSTEOPOROSIS [None]
  - TOOTH ABSCESS [None]
